FAERS Safety Report 6357430-0 (Version None)
Quarter: 2009Q3

REPORT INFORMATION
  Report Type: 
  Country: None (occurrence: None)
  Receive Date: 20090916
  Receipt Date: 20090907
  Transmission Date: 20100115
  Serious: Yes (Hospitalization, Other)
  Sender: FDA-Public Use
  Company Number: JP-JNJFOC-20090903204

PATIENT
  Sex: Male
  Weight: 73 kg

DRUGS (24)
  1. LEUSTATIN [Suspect]
     Indication: DRUG USE FOR UNKNOWN INDICATION
     Route: 041
  2. MYCOSYST [Concomitant]
     Indication: PNEUMOCYSTIS JIROVECI PNEUMONIA
     Route: 048
     Dates: start: 20070730, end: 20070801
  3. BAKTAR [Concomitant]
     Indication: PNEUMOCYSTIS JIROVECI PNEUMONIA
     Route: 048
     Dates: start: 20070730, end: 20070801
  4. ISCOTIN [Concomitant]
     Indication: PNEUMOCYSTIS JIROVECI PNEUMONIA
     Route: 048
     Dates: start: 20070730, end: 20070801
  5. POLARAMINE [Concomitant]
     Route: 041
     Dates: start: 20070730, end: 20070813
  6. NEUTROGIN [Concomitant]
     Route: 041
     Dates: start: 20070728, end: 20070806
  7. PENTCILLIN [Concomitant]
     Indication: TONSILLAR INFLAMMATION
     Route: 041
  8. TAZOCIN [Concomitant]
     Indication: TONSILLAR INFLAMMATION
     Route: 041
     Dates: start: 20070719, end: 20070727
  9. AMIKACIN SULFATE [Concomitant]
     Indication: TONSILLAR INFLAMMATION
     Route: 041
     Dates: start: 20070719, end: 20070724
  10. CLIDAMACIN [Concomitant]
     Indication: TONSILLAR INFLAMMATION
     Route: 041
     Dates: start: 20070725, end: 20070730
  11. TIENAM [Concomitant]
     Indication: TONSILLAR INFLAMMATION
     Route: 041
     Dates: start: 20070728, end: 20070730
  12. LOXONIN [Concomitant]
     Indication: ANALGESIA
     Route: 048
     Dates: start: 20070717, end: 20070718
  13. ROPION [Concomitant]
     Indication: ANALGESIA
     Route: 041
     Dates: start: 20070719, end: 20070720
  14. ZITHROMAX [Concomitant]
     Indication: TONSILLAR INFLAMMATION
     Route: 048
     Dates: start: 20070718, end: 20070720
  15. SEISHOKU [Concomitant]
     Route: 041
     Dates: start: 20070719, end: 20070731
  16. SEISHOKU [Concomitant]
     Route: 041
     Dates: start: 20070719, end: 20070731
  17. SEISHOKU [Concomitant]
     Indication: ANALGESIA
     Route: 041
     Dates: start: 20070719, end: 20070731
  18. METILON [Concomitant]
     Indication: ANALGESIA
     Route: 041
     Dates: start: 20070719, end: 20070731
  19. LASIX [Concomitant]
     Indication: OEDEMA
     Route: 042
     Dates: start: 20070724, end: 20070730
  20. NASEA [Concomitant]
     Indication: PROPHYLAXIS OF NAUSEA AND VOMITING
     Route: 041
     Dates: start: 20070720, end: 20070726
  21. GASTER [Concomitant]
     Indication: PROPHYLAXIS AGAINST GASTROINTESTINAL ULCER
     Route: 041
  22. LEVOFLOXACIN [Concomitant]
     Indication: TONSILLAR INFLAMMATION
     Route: 048
     Dates: start: 20070730, end: 20070801
  23. AUGMENTIN [Concomitant]
     Indication: TONSILLAR INFLAMMATION
     Route: 048
     Dates: start: 20070730, end: 20070801
  24. UNKNOWN MEDICATION [Concomitant]
     Indication: ANALGESIA
     Route: 041
     Dates: start: 20070720, end: 20070722

REACTIONS (8)
  - ALANINE AMINOTRANSFERASE INCREASED [None]
  - BLOOD ALBUMIN DECREASED [None]
  - BLOOD POTASSIUM DECREASED [None]
  - EOSINOPHILIA [None]
  - GAMMA-GLUTAMYLTRANSFERASE INCREASED [None]
  - LEUKOPENIA [None]
  - LYMPHOCYTE COUNT DECREASED [None]
  - RASH [None]
